FAERS Safety Report 13448002 (Version 2)
Quarter: 2017Q2

REPORT INFORMATION
  Report Type: Spontaneous
  Country: US (occurrence: US)
  Receive Date: 20170417
  Receipt Date: 20170608
  Transmission Date: 20170830
  Serious: No
  Sender: FDA-Public Use
  Company Number: US-BAYER-2017-072785

PATIENT
  Age: 75 Year
  Sex: Male
  Weight: 71.2 kg

DRUGS (3)
  1. ALEVE [Suspect]
     Active Substance: NAPROXEN SODIUM
     Indication: PAIN
     Dosage: 3 DF, UNK
     Route: 065
  2. ALEVE [Suspect]
     Active Substance: NAPROXEN SODIUM
     Indication: BACK PAIN
     Dosage: 2 DF, UNK
     Route: 048
     Dates: start: 201704, end: 20170606
  3. ALEVE [Concomitant]
     Active Substance: NAPROXEN SODIUM
     Dosage: UNK

REACTIONS (3)
  - Incorrect drug administration duration [Unknown]
  - Product use issue [Unknown]
  - Incorrect dosage administered [Unknown]
